FAERS Safety Report 6687056-0 (Version None)
Quarter: 2010Q2

REPORT INFORMATION
  Report Type: 
  Country: None (occurrence: None)
  Receive Date: 20100419
  Receipt Date: 20100408
  Transmission Date: 20101027
  Serious: Yes (Other)
  Sender: FDA-Public Use
  Company Number: BR-PFIZER INC-2009288187

PATIENT
  Age: 24 Year
  Sex: Female
  Weight: 54 kg

DRUGS (2)
  1. DEPO-PROVERA [Suspect]
     Indication: OFF LABEL USE
     Dosage: 150 MG, EVERY 3 MONTHS
     Route: 030
     Dates: start: 20090101, end: 20090911
  2. CELERG [Concomitant]
     Indication: RHINITIS ALLERGIC
     Dosage: UNK

REACTIONS (3)
  - ALOPECIA [None]
  - MENOMETRORRHAGIA [None]
  - POLYCYSTIC OVARIES [None]
